FAERS Safety Report 8370669-8 (Version None)
Quarter: 2012Q2

REPORT INFORMATION
  Report Type: 
  Country: None (occurrence: None)
  Receive Date: 20120518
  Receipt Date: 20120508
  Transmission Date: 20120825
  Serious: Yes (Hospitalization)
  Sender: FDA-Public Use
  Company Number: US-JNJFOC-20120514554

PATIENT
  Sex: Female

DRUGS (2)
  1. EFFEXOR [Concomitant]
     Indication: DEPRESSION
  2. INVEGA [Suspect]
     Indication: SCHIZOPHRENIA
     Route: 048

REACTIONS (9)
  - HALLUCINATION [None]
  - MUSCLE RIGIDITY [None]
  - CONVULSION [None]
  - DIZZINESS [None]
  - VISION BLURRED [None]
  - MUSCLE SPASMS [None]
  - DRUG DOSE OMISSION [None]
  - ORTHOSTATIC HYPOTENSION [None]
  - FEELING JITTERY [None]
